FAERS Safety Report 9869806 (Version 1)
Quarter: 2014Q1

REPORT INFORMATION
  Report Type: Spontaneous
  Country: US (occurrence: US)
  Receive Date: 20140205
  Receipt Date: 20140205
  Transmission Date: 20141002
  Serious: No
  Sender: FDA-Public Use
  Company Number: US-GLAXOSMITHKLINE-A1046309A

PATIENT
  Age: 69 Year
  Sex: Female

DRUGS (3)
  1. ARIXTRA [Suspect]
     Indication: PRODUCT USED FOR UNKNOWN INDICATION
     Dosage: 7.5MG UNKNOWN
     Route: 065
     Dates: start: 20130911
  2. CHEMOTHERAPY [Concomitant]
  3. RADIATION THERAPY [Concomitant]

REACTIONS (2)
  - Needle issue [Unknown]
  - Product quality issue [Unknown]
